FAERS Safety Report 22051025 (Version 1)
Quarter: 2023Q1

REPORT INFORMATION
  Report Type: Spontaneous
  Country: US (occurrence: None)
  Receive Date: 20230301
  Receipt Date: 20230301
  Transmission Date: 20230418
  Serious: Yes (Death)
  Sender: FDA-Public Use
  Company Number: None

PATIENT
  Age: 46 Year
  Sex: Male

DRUGS (1)
  1. HUMIRA [Suspect]
     Active Substance: ADALIMUMAB
     Indication: Rheumatoid arthritis
     Route: 058
     Dates: start: 202212, end: 202302

REACTIONS (3)
  - Cardiomegaly [None]
  - Myocardial infarction [None]
  - Cerebrovascular accident [None]

NARRATIVE: CASE EVENT DATE: 20230218
